FAERS Safety Report 5029816-8 (Version None)
Quarter: 2006Q2

REPORT INFORMATION
  Report Type: 
  Country: None (occurrence: None)
  Receive Date: 20060620
  Receipt Date: 20060606
  Transmission Date: 20061013
  Serious: Yes (Hospitalization)
  Sender: FDA-Public Use
  Company Number: PHBS2006JP08624

PATIENT
  Age: 29 Year
  Sex: Female

DRUGS (8)
  1. NORTRIPTYLINE HCL [Suspect]
     Indication: MAJOR DEPRESSION
     Dosage: 150 MG/D
  2. TRAZODONE HCL [Concomitant]
     Indication: MAJOR DEPRESSION
     Dosage: 75 MG/D
  3. THYROXINE [Concomitant]
     Indication: MAJOR DEPRESSION
     Dosage: 100 MG/D
  4. CABERGOLINE [Concomitant]
     Indication: MAJOR DEPRESSION
     Dosage: 4 MG/D
  5. CABERGOLINE [Concomitant]
     Dosage: 2 MG/D
  6. SELEGILINE HCL [Concomitant]
     Indication: MAJOR DEPRESSION
  7. IMIPRAMINE HCL [Suspect]
     Indication: MAJOR DEPRESSION
     Dosage: 50 MG/D
  8. IMIPRAMINE HCL [Suspect]
     Dosage: 150 MG/D

REACTIONS (3)
  - CONDITION AGGRAVATED [None]
  - DEPRESSIVE SYMPTOM [None]
  - NEUROTOXICITY [None]
